FAERS Safety Report 19168839 (Version 1)
Quarter: 2021Q2

REPORT INFORMATION
  Report Type: Spontaneous
  Country: US (occurrence: US)
  Receive Date: 20210421
  Receipt Date: 20210421
  Transmission Date: 20210717
  Serious: Yes (Life-Threatening)
  Sender: FDA-Public Use
  Company Number: None

PATIENT
  Age: 14 Year
  Sex: Female
  Weight: 77.85 kg

DRUGS (7)
  1. BUSPIRONE [Suspect]
     Active Substance: BUSPIRONE HYDROCHLORIDE
     Indication: ANXIETY
     Dosage: ?          QUANTITY:1 TABLET(S);?
     Route: 048
     Dates: start: 20210413, end: 20210421
  2. BUPROPION XL [Concomitant]
     Active Substance: BUPROPION
  3. QUETIAPINE. [Concomitant]
     Active Substance: QUETIAPINE
  4. FISHOIL [Concomitant]
  5. VITAMIN D3 [Concomitant]
     Active Substance: CHOLECALCIFEROL
  6. PROBIOTIC [Concomitant]
     Active Substance: PROBIOTICS NOS
  7. LAMOTRIGINE. [Concomitant]
     Active Substance: LAMOTRIGINE

REACTIONS (5)
  - Insomnia [None]
  - Muscle twitching [None]
  - Hypertension [None]
  - Heart rate increased [None]
  - Abnormal behaviour [None]

NARRATIVE: CASE EVENT DATE: 20210420
